FAERS Safety Report 5005746-2 (Version None)
Quarter: 2006Q2

REPORT INFORMATION
  Report Type: 
  Country: None (occurrence: None)
  Receive Date: 20060515
  Receipt Date: 20060426
  Transmission Date: 20061013
  Serious: No
  Sender: FDA-Public Use
  Company Number: 34554

PATIENT
  Age: 4 Year
  Sex: Female

DRUGS (1)
  1. CYCLOPENTOLATE HCL 0.5% (CYCLOGYL) [Suspect]
     Dosage: 6 GTTS ONE OPHT
     Route: 047

REACTIONS (4)
  - CONVULSION [None]
  - EYE MOVEMENT DISORDER [None]
  - HEADACHE [None]
  - STRABISMUS [None]
